FAERS Safety Report 8914228 (Version 1)
Quarter: 2012Q4

REPORT INFORMATION
  Report Type: 
  Country: FR (occurrence: FR)
  Receive Date: 20121119
  Receipt Date: 20121119
  Transmission Date: 20130627
  Serious: No
  Sender: FDA-Public Use
  Company Number: FR-ELI_LILLY_AND_COMPANY-FR201211002827

PATIENT
  Age: 34 Year
  Sex: Male

DRUGS (1)
  1. ZYPADHERA [Suspect]

REACTIONS (1)
  - Injection site haemorrhage [Unknown]
